FAERS Safety Report 10149509 (Version 1)
Quarter: 2014Q2

REPORT INFORMATION
  Report Type: Spontaneous
  Country: CA (occurrence: CA)
  Receive Date: 20140502
  Receipt Date: 20140502
  Transmission Date: 20141212
  Serious: Yes (Other)
  Sender: FDA-Public Use
  Company Number: CA-009507513-1405CAN000090

PATIENT
  Age: 51 Year
  Sex: Male
  Weight: 119 kg

DRUGS (6)
  1. JANUVIA [Suspect]
     Dosage: 100 MG, 1 EVERY 1 DAY(S)
     Route: 048
  2. EZETROL [Concomitant]
     Dosage: UNK
     Route: 048
  3. ASPIRIN [Concomitant]
     Dosage: UNK
     Route: 065
  4. DIAMICRON [Concomitant]
     Dosage: UNK
     Route: 048
  5. LANTUS [Concomitant]
     Dosage: UNK
     Route: 058
  6. METFORMIN [Concomitant]
     Dosage: UNK
     Route: 048

REACTIONS (3)
  - Lipase increased [Unknown]
  - Pancreatitis [Unknown]
  - Diarrhoea [Unknown]
